FAERS Safety Report 8799293 (Version 1)
Quarter: 2012Q4

REPORT INFORMATION
  Report Type: Spontaneous
  Country: GB (occurrence: None)
  Receive Date: 20120914
  Receipt Date: 20120914
  Transmission Date: 20130627
  Serious: Yes (Hospitalization, Other)
  Sender: FDA-Public Use
  Company Number: 2012MA010973

PATIENT
  Age: 22 Year
  Sex: Female

DRUGS (2)
  1. FEVERALL [Suspect]
     Route: 048
  2. ANADIN EXTRA [Suspect]
     Route: 048

REACTIONS (8)
  - Intentional overdose [None]
  - Premature labour [None]
  - Vomiting [None]
  - Exposure during pregnancy [None]
  - Toxicity to various agents [None]
  - Aspartate aminotransferase increased [None]
  - Blood bilirubin increased [None]
  - Prothrombin time prolonged [None]
